FAERS Safety Report 4277012-4 (Version None)
Quarter: 2004Q1

REPORT INFORMATION
  Report Type: 
  Country: None (occurrence: None)
  Receive Date: 20040120
  Receipt Date: 20040120
  Transmission Date: 20041129
  Serious: Yes (Hospitalization)
  Sender: FDA-Public Use
  Company Number: None

PATIENT
  Age: 62 Year
  Sex: Female

DRUGS (1)
  1. GOLD SODIUM THIOMALATE [Suspect]
     Indication: RHEUMATOID ARTHRITIS
     Dosage: 50 MG IM Q WEEK
     Route: 030
     Dates: start: 20030401, end: 20030801

REACTIONS (1)
  - PURPURA [None]
